FAERS Safety Report 16983388 (Version 1)
Quarter: 2019Q4

REPORT INFORMATION
  Report Type: Spontaneous
  Country: US (occurrence: US)
  Receive Date: 20191030
  Receipt Date: 20191030
  Transmission Date: 20200122
  Serious: Yes (Death)
  Sender: FDA-Public Use
  Company Number: None

PATIENT
  Age: 63 Year
  Sex: Female
  Weight: 51.75 kg

DRUGS (1)
  1. XPOVIO [Suspect]
     Active Substance: SELINEXOR
     Dosage: ?          OTHER FREQUENCY:TWICE WEEKLY;?
     Route: 048
     Dates: start: 20190910, end: 20191030

REACTIONS (1)
  - Death [None]

NARRATIVE: CASE EVENT DATE: 20191028
